FAERS Safety Report 7667469-0 (Version None)
Quarter: 2011Q3

REPORT INFORMATION
  Report Type: 
  Country: None (occurrence: None)
  Receive Date: 20110806
  Receipt Date: 20110408
  Transmission Date: 20111222
  Serious: No
  Sender: FDA-Public Use
  Company Number: US-ABBOTT-11P-163-0717476-00

PATIENT
  Sex: Female
  Weight: 69.916 kg

DRUGS (1)
  1. NIASPAN [Suspect]
     Indication: HIGH DENSITY LIPOPROTEIN DECREASED
     Dosage: AT BEDTIME
     Route: 048

REACTIONS (6)
  - FLUSHING [None]
  - HEADACHE [None]
  - MALAISE [None]
  - FEELING HOT [None]
  - HYPERHIDROSIS [None]
  - DIZZINESS [None]
